FAERS Safety Report 13345670 (Version 1)
Quarter: 2017Q1

REPORT INFORMATION
  Report Type: Spontaneous
  Country: US (occurrence: US)
  Receive Date: 20170317
  Receipt Date: 20170317
  Transmission Date: 20170428
  Serious: Yes (Hospitalization, Other)
  Sender: FDA-Public Use
  Company Number: US-ELI_LILLY_AND_COMPANY-US201703006231

PATIENT
  Age: 69 Year
  Sex: Male

DRUGS (6)
  1. FLUOXETINE HYDROCHLORIDE. [Suspect]
     Active Substance: FLUOXETINE HYDROCHLORIDE
     Indication: PRODUCT USED FOR UNKNOWN INDICATION
     Route: 065
  2. DIPHENHYDRAMINE HYDROCHLORIDE. [Interacting]
     Active Substance: DIPHENHYDRAMINE HYDROCHLORIDE
     Route: 065
  3. FLUPHENAZINE [Interacting]
     Active Substance: FLUPHENAZINE
     Route: 065
  4. ROPINIROLE. [Interacting]
     Active Substance: ROPINIROLE
     Route: 065
  5. AMIODARONE [Interacting]
     Active Substance: AMIODARONE
     Route: 065
  6. CIPROFLOXACIN. [Interacting]
     Active Substance: CIPROFLOXACIN
     Route: 065

REACTIONS (7)
  - Clostridium difficile infection [Unknown]
  - Delirium [Unknown]
  - Sepsis [Unknown]
  - Drug interaction [Unknown]
  - Fatigue [Unknown]
  - Torsade de pointes [Unknown]
  - Mental status changes [Unknown]
